FAERS Safety Report 23603308 (Version 1)
Quarter: 2024Q1

REPORT INFORMATION
  Report Type: Spontaneous
  Country: US (occurrence: US)
  Receive Date: 20240307
  Receipt Date: 20240307
  Transmission Date: 20240409
  Serious: No
  Sender: FDA-Public Use
  Company Number: US-PADAGIS-2024PAD00297

PATIENT

DRUGS (3)
  1. AMMONIUM LACTATE [Suspect]
     Active Substance: AMMONIUM LACTATE
     Indication: Dry skin
     Dosage: SINGLE USE
     Route: 065
  2. GABAPENTIN [Concomitant]
     Active Substance: GABAPENTIN
     Indication: Neuropathy peripheral
     Dosage: UNK, QD
     Route: 065
  3. OZEMPIC [Concomitant]
     Active Substance: SEMAGLUTIDE
     Indication: Weight decreased
     Dosage: UNK
     Route: 065

REACTIONS (7)
  - Application site swelling [Recovered/Resolved]
  - Application site discolouration [Recovered/Resolved]
  - Rash erythematous [Unknown]
  - Dermal absorption increased [Unknown]
  - Application site erythema [Unknown]
  - Application site pain [Recovered/Resolved]
  - Prescription drug used without a prescription [Unknown]
